FAERS Safety Report 5252079-5 (Version None)
Quarter: 2007Q1

REPORT INFORMATION
  Report Type: 
  Country: None (occurrence: None)
  Receive Date: 20070227
  Receipt Date: 20060601
  Transmission Date: 20070707
  Serious: Yes (Life-Threatening, Other)
  Sender: FDA-Public Use
  Company Number: DSA_29404_2007

PATIENT
  Age: 82 Year
  Sex: Female

DRUGS (10)
  1. BI-TILDIEM [Suspect]
     Indication: ANGINA PECTORIS
     Dosage: 240 MG Q DAY PO
     Route: 048
     Dates: start: 19930101, end: 20060506
  2. BI-TILDIEM [Suspect]
     Indication: ARTERIOSPASM CORONARY
     Dosage: 240 MG Q DAY PO
     Route: 048
     Dates: start: 19930101, end: 20060506
  3. KARDEGIC [Concomitant]
  4. IKOREL [Concomitant]
  5. VASTAREL [Concomitant]
  6. MOLSIDOMINE [Concomitant]
  7. LEXOMIL [Concomitant]
  8. FORLAX [Concomitant]
  9. DAFALGAN [Concomitant]
  10. EDUCTYL [Concomitant]

REACTIONS (7)
  - DIARRHOEA [None]
  - DIVERTICULUM INTESTINAL [None]
  - HYPERHIDROSIS [None]
  - INFLAMMATION [None]
  - MEDICATION RESIDUE [None]
  - SUBILEUS [None]
  - URINARY RETENTION [None]
